FAERS Safety Report 21432748 (Version 1)
Quarter: 2022Q4

REPORT INFORMATION
  Report Type: Report from Study
  Country: US (occurrence: US)
  Receive Date: 20221010
  Receipt Date: 20221010
  Transmission Date: 20230113
  Serious: Yes (Hospitalization)
  Sender: FDA-Public Use
  Company Number: US-ABBVIE-4144116

PATIENT
  Sex: Male

DRUGS (18)
  1. IMBRUVICA [Suspect]
     Active Substance: IBRUTINIB
     Indication: Acute myeloid leukaemia
     Route: 048
     Dates: start: 20220901
  2. ZOFRAN [Concomitant]
     Active Substance: ONDANSETRON HYDROCHLORIDE
     Indication: Product used for unknown indication
     Route: 048
  3. Carafate (Sucralfate) [Concomitant]
     Indication: Product used for unknown indication
     Dosage: 1 GM/10ML
     Route: 048
  4. Pantoprazole sodium (Pantoprazole sodium sesquihydrate) [Concomitant]
     Indication: Product used for unknown indication
     Route: 048
  5. Bentyl (Dicycloverine hydrochloride) [Concomitant]
     Indication: Product used for unknown indication
     Route: 048
  6. Azor (Amlodipine besilate;Olmesartan medoxomil) [Concomitant]
     Indication: Product used for unknown indication
     Dosage: 10-40 MG
     Route: 048
  7. Reglan (Metoclopramide hydrochloride) [Concomitant]
     Indication: Product used for unknown indication
     Route: 048
  8. Posaconazole (Posaconazole) [Concomitant]
     Indication: Product used for unknown indication
     Dosage: DELAYED RELEASED TABLET
     Route: 048
  9. LEVAQUIN [Concomitant]
     Active Substance: LEVOFLOXACIN
     Indication: Product used for unknown indication
     Route: 048
  10. ALPRAZOLAM [Concomitant]
     Active Substance: ALPRAZOLAM
     Indication: Product used for unknown indication
     Route: 048
  11. LEXAPRO [Concomitant]
     Active Substance: ESCITALOPRAM OXALATE
     Indication: Product used for unknown indication
     Route: 048
  12. XARELTO [Concomitant]
     Active Substance: RIVAROXABAN
     Indication: Product used for unknown indication
     Route: 048
  13. OXYCODONE HYDROCHLORIDE [Concomitant]
     Active Substance: OXYCODONE HYDROCHLORIDE
     Indication: Product used for unknown indication
     Route: 048
  14. ACYCLOVIR [Concomitant]
     Active Substance: ACYCLOVIR
     Indication: Product used for unknown indication
     Route: 048
  15. NOXAFIL [Concomitant]
     Active Substance: POSACONAZOLE
     Indication: Product used for unknown indication
     Route: 048
  16. Norco (Hydrocodone bitartrate;Paracetamol) [Concomitant]
     Indication: Product used for unknown indication
     Dosage: 5-325 MG
     Route: 048
  17. LIDOCAINE [Concomitant]
     Active Substance: LIDOCAINE
     Indication: Product used for unknown indication
  18. VENCLEXTA [Suspect]
     Active Substance: VENETOCLAX
     Indication: Product used for unknown indication
     Route: 048

REACTIONS (1)
  - Infection [Unknown]
